FAERS Safety Report 10165857 (Version 1)
Quarter: 2014Q2

REPORT INFORMATION
  Report Type: Spontaneous
  Country: US (occurrence: US)
  Receive Date: 20140510
  Receipt Date: 20140510
  Transmission Date: 20141212
  Serious: No
  Sender: FDA-Public Use
  Company Number: US-BRISTOL-MYERS SQUIBB COMPANY-19986405

PATIENT
  Age: 47 Year
  Sex: Male
  Weight: 77.1 kg

DRUGS (2)
  1. BYDUREON [Suspect]
     Indication: TYPE 2 DIABETES MELLITUS
     Route: 058
     Dates: start: 2013
  2. JANUMET [Concomitant]

REACTIONS (3)
  - Injection site swelling [Unknown]
  - Injection site extravasation [Unknown]
  - Weight decreased [Unknown]
